FAERS Safety Report 24053998 (Version 2)
Quarter: 2024Q4

REPORT INFORMATION
  Report Type: Spontaneous
  Country: US (occurrence: US)
  Receive Date: 20240705
  Receipt Date: 20241119
  Transmission Date: 20250114
  Serious: No
  Sender: SANOFI AVENTIS
  Company Number: US-SA-SAC20240624000588

PATIENT
  Age: 1 Year
  Sex: Male

DRUGS (4)
  1. ALPROLIX [Suspect]
     Active Substance: EFTRENONACOG ALFA
     Indication: Factor IX deficiency
     Dosage: UNK
     Route: 042
     Dates: start: 20240509, end: 2024
  2. ALPROLIX [Suspect]
     Active Substance: EFTRENONACOG ALFA
     Indication: Factor IX deficiency
     Dosage: UNK
     Route: 042
     Dates: start: 20240509, end: 2024
  3. ALPROLIX [Suspect]
     Active Substance: EFTRENONACOG ALFA
     Dosage: 1110 U, Q4D
     Dates: start: 202406
  4. ALPROLIX [Suspect]
     Active Substance: EFTRENONACOG ALFA
     Dosage: 1110 U, Q4D
     Dates: start: 202406

REACTIONS (3)
  - Coagulation factor IX level decreased [Not Recovered/Not Resolved]
  - Gingival bleeding [Unknown]
  - Gingival injury [Unknown]

NARRATIVE: CASE EVENT DATE: 20240101
